FAERS Safety Report 4584578-3 (Version None)
Quarter: 2005Q1

REPORT INFORMATION
  Report Type: 
  Country: None (occurrence: None)
  Receive Date: 20050125
  Receipt Date: 20041013
  Transmission Date: 20050727
  Serious: No
  Sender: FDA-Public Use
  Company Number: US_990928486

PATIENT
  Age: 81 Year
  Sex: Female
  Weight: 43 kg

DRUGS (6)
  1. FORTEO [Suspect]
     Indication: OSTEOPOROSIS
     Dosage: 20 UG/1 DAY
     Dates: start: 20040301, end: 20040901
  2. EVISTA [Suspect]
     Indication: OSTEOPOROSIS
     Dosage: 30 MG/1 DAY
     Dates: start: 19990801
  3. VISUDYNE [Concomitant]
  4. OCUVITE [Concomitant]
  5. MULTIVITAMIN [Concomitant]
  6. CALCIUM GLUCONATE [Concomitant]

REACTIONS (16)
  - ANOREXIA [None]
  - ARTHRALGIA [None]
  - DIZZINESS [None]
  - FATIGUE [None]
  - HEADACHE [None]
  - HOT FLUSH [None]
  - HYPOGLYCAEMIA [None]
  - INSOMNIA [None]
  - JOINT RANGE OF MOTION DECREASED [None]
  - JOINT STIFFNESS [None]
  - LABYRINTHITIS [None]
  - MUSCLE SPASMS [None]
  - NAUSEA [None]
  - PHOTOPSIA [None]
  - VERTIGO [None]
  - WEIGHT DECREASED [None]
